FAERS Safety Report 15867029 (Version 1)
Quarter: 2019Q1

REPORT INFORMATION
  Report Type: Other
  Country: IT (occurrence: IT)
  Receive Date: 20190125
  Receipt Date: 20190125
  Transmission Date: 20190417
  Serious: Yes (Hospitalization)
  Sender: FDA-Public Use
  Company Number: IT-ACCORD-103456

PATIENT
  Age: 77 Year

DRUGS (7)
  1. AULIN [Concomitant]
     Active Substance: NIMESULIDE
  2. GARDENALE [Concomitant]
     Active Substance: PHENOBARBITAL
  3. TOTALIP [Concomitant]
     Active Substance: ATORVASTATIN
  4. TAVOR [Concomitant]
  5. MICARDIS [Concomitant]
     Active Substance: TELMISARTAN
  6. CLOPIDOGREL [Suspect]
     Active Substance: CLOPIDOGREL BISULFATE
     Indication: CARDIOVASCULAR EVENT PROPHYLAXIS
     Route: 048
     Dates: start: 20170101, end: 20170902
  7. CARDIOASPIRIN [Suspect]
     Active Substance: ASPIRIN
     Indication: PRODUCT USED FOR UNKNOWN INDICATION
     Route: 048
     Dates: start: 20170101, end: 20170902

REACTIONS (1)
  - Altered state of consciousness [Unknown]

NARRATIVE: CASE EVENT DATE: 20170902
